FAERS Safety Report 17349286 (Version 1)
Quarter: 2020Q1

REPORT INFORMATION
  Report Type: Report from Study
  Country: RU (occurrence: RU)
  Receive Date: 20200130
  Receipt Date: 20200130
  Transmission Date: 20200409
  Serious: Yes (Hospitalization)
  Sender: FDA-Public Use
  Company Number: NVSC2020RU021592

PATIENT
  Age: 68 Year
  Sex: Male

DRUGS (1)
  1. IMATINIB. [Suspect]
     Active Substance: IMATINIB MESYLATE
     Indication: CHRONIC MYELOID LEUKAEMIA
     Dosage: 400 MG, QD (PACK SIZE 20)
     Route: 048
     Dates: start: 2014

REACTIONS (1)
  - Ischaemia [Recovered/Resolved]

NARRATIVE: CASE EVENT DATE: 20200120
